FAERS Safety Report 22104824 (Version 1)
Quarter: 2023Q1

REPORT INFORMATION
  Report Type: Spontaneous
  Country: US (occurrence: US)
  Receive Date: 20230316
  Receipt Date: 20230316
  Transmission Date: 20230418
  Serious: Yes (Hospitalization, Other)
  Sender: FDA-Public Use
  Company Number: US-APIL-2308308US

PATIENT
  Sex: Male

DRUGS (16)
  1. DALVANCE [Suspect]
     Active Substance: DALBAVANCIN
     Indication: Osteomyelitis
     Dosage: UNK
     Route: 042
     Dates: start: 20230309
  2. DALVANCE [Suspect]
     Active Substance: DALBAVANCIN
     Dosage: UNK
     Route: 042
     Dates: start: 20230302
  3. NORVASC [Concomitant]
     Active Substance: AMLODIPINE BESYLATE
     Indication: Hypertension
  4. VITAMIN B3 [Concomitant]
     Active Substance: NIACIN
  5. BENADRYL [Concomitant]
     Active Substance: DIPHENHYDRAMINE HYDROCHLORIDE
     Indication: Sleep disorder
  6. FOLIC ACID [Concomitant]
     Active Substance: FOLIC ACID
  7. HYDRALAZINE [Concomitant]
     Active Substance: HYDRALAZINE HYDROCHLORIDE
  8. LANTUS [Concomitant]
     Active Substance: INSULIN GLARGINE
  9. MAGNESIUM OXIDE [Concomitant]
     Active Substance: MAGNESIUM OXIDE
  10. IMDUR [Concomitant]
     Active Substance: ISOSORBIDE MONONITRATE
  11. MELATONIN [Concomitant]
     Active Substance: MELATONIN
     Indication: Sleep disorder
  12. OZEMPIC [Concomitant]
     Active Substance: SEMAGLUTIDE
     Indication: Diabetes mellitus
  13. SODIUM BICARBONATE [Concomitant]
     Active Substance: SODIUM BICARBONATE
  14. RISPERDAL [Concomitant]
     Active Substance: RISPERIDONE
  15. VITAMIN B12 [Concomitant]
     Active Substance: CYANOCOBALAMIN
  16. ZINC SULFATE [Concomitant]
     Active Substance: ZINC SULFATE

REACTIONS (5)
  - Hypervolaemia [Unknown]
  - Abdominal distension [Unknown]
  - Oedema peripheral [Unknown]
  - Dyspnoea [Unknown]
  - Off label use [Unknown]

NARRATIVE: CASE EVENT DATE: 20230310
